FAERS Safety Report 19634936 (Version 1)
Quarter: 2021Q3

REPORT INFORMATION
  Report Type: Spontaneous
  Country: US (occurrence: US)
  Receive Date: 20210730
  Receipt Date: 20210730
  Transmission Date: 20211014
  Serious: Yes (Death, Hospitalization)
  Sender: FDA-Public Use
  Company Number: None

PATIENT
  Age: 24 Year
  Sex: Male
  Weight: 96.2 kg

DRUGS (7)
  1. VINCRISTINE SULFATE. [Suspect]
     Active Substance: VINCRISTINE SULFATE
     Dates: end: 20210610
  2. METHOTREXATE. [Suspect]
     Active Substance: METHOTREXATE
     Dates: end: 20210604
  3. CYTARABINE. [Suspect]
     Active Substance: CYTARABINE
     Dates: end: 20210527
  4. ELIQUIS [Concomitant]
     Active Substance: APIXABAN
  5. DAUNORUBICIN [Suspect]
     Active Substance: DAUNORUBICIN
     Dates: end: 20210610
  6. DEXAMETHASONE. [Suspect]
     Active Substance: DEXAMETHASONE
     Dates: end: 20210614
  7. ONCASPAR [Suspect]
     Active Substance: PEGASPARGASE
     Dosage: ?          OTHER DOSE:3750 UNIT;?
     Dates: end: 20210530

REACTIONS (10)
  - Pancreatitis necrotising [None]
  - Liver disorder [None]
  - Unresponsive to stimuli [None]
  - Platelet count decreased [None]
  - Fibrin D dimer increased [None]
  - Acidosis [None]
  - Ventricular fibrillation [None]
  - Vascular test abnormal [None]
  - Pulseless electrical activity [None]
  - Hyperkalaemia [None]

NARRATIVE: CASE EVENT DATE: 20210614
